FAERS Safety Report 6941539-4 (Version None)
Quarter: 2010Q3

REPORT INFORMATION
  Report Type: 
  Country: None (occurrence: None)
  Receive Date: 20100825
  Receipt Date: 20100818
  Transmission Date: 20110219
  Serious: No
  Sender: FDA-Public Use
  Company Number: US-US-EMD SERONO, INC.-231636J10USA

PATIENT
  Sex: Female

DRUGS (8)
  1. REBIF [Suspect]
     Indication: MULTIPLE SCLEROSIS
     Route: 058
     Dates: start: 20090216, end: 20100101
  2. UNSPECIFIED INTRAVENOUS STEROIDS THERAPY [Suspect]
     Indication: MULTIPLE SCLEROSIS RELAPSE
     Route: 042
     Dates: start: 20100201, end: 20100218
  3. LYRICA [Concomitant]
     Indication: FIBROMYALGIA
     Route: 065
  4. PHENERGAN [Concomitant]
     Indication: DIZZINESS
     Route: 065
  5. PHENERGAN [Concomitant]
     Indication: NAUSEA
  6. PREVACID [Concomitant]
     Indication: ABDOMINAL DISCOMFORT
     Route: 065
  7. WELLBUTRIN [Concomitant]
     Route: 065
  8. RESTORIL [Concomitant]
     Indication: INSOMNIA
     Route: 065

REACTIONS (4)
  - CONVULSION [None]
  - INFLUENZA LIKE ILLNESS [None]
  - MULTIPLE SCLEROSIS RELAPSE [None]
  - PSYCHOTIC DISORDER [None]
